FAERS Safety Report 8880534 (Version 2)
Quarter: 2012Q4

REPORT INFORMATION
  Report Type: 
  Country: GB (occurrence: GB)
  Receive Date: 20121101
  Receipt Date: 20121113
  Transmission Date: 20130627
  Serious: Yes (Hospitalization, Other)
  Sender: FDA-Public Use
  Company Number: GB-PAR PHARMACEUTICAL, INC-2012SCPR004691

PATIENT

DRUGS (5)
  1. DIAZEPAM [Suspect]
     Indication: PRODUCT USED FOR UNKNOWN INDICATION
     Dosage: 115 mg, Unknown
     Route: 048
  2. CITALOPRAM [Suspect]
     Indication: PRODUCT USED FOR UNKNOWN INDICATION
     Dosage: 560 mg, Unknown
     Route: 048
  3. DILTIAZEM [Suspect]
     Indication: PRODUCT USED FOR UNKNOWN INDICATION
     Dosage: 3360 mg, Unknown
     Route: 048
  4. GABAPENTIN [Suspect]
     Indication: PRODUCT USED FOR UNKNOWN INDICATION
     Dosage: 1800 mg, Unknown
     Route: 048
  5. IRBESARTAN [Suspect]
     Indication: PRODUCT USED FOR UNKNOWN INDICATION
     Dosage: 1800 mg, Unknown
     Route: 048

REACTIONS (8)
  - Toxicity to various agents [Unknown]
  - Depressed level of consciousness [Unknown]
  - Atrioventricular block complete [Recovering/Resolving]
  - Left ventricular failure [Not Recovered/Not Resolved]
  - Pulmonary oedema [Unknown]
  - Hypoxia [Unknown]
  - Renal impairment [Not Recovered/Not Resolved]
  - Intentional overdose [Unknown]
